FAERS Safety Report 7945946-2 (Version None)
Quarter: 2011Q4

REPORT INFORMATION
  Report Type: 
  Country: None (occurrence: None)
  Receive Date: 20111129
  Receipt Date: 20111121
  Transmission Date: 20120403
  Serious: Yes (Other)
  Sender: FDA-Public Use
  Company Number: TR-ROXANE LABORATORIES, INC.-2011-RO-01669RO

PATIENT
  Age: 5 Year
  Sex: Male

DRUGS (2)
  1. RISPERIDONE [Suspect]
     Dosage: 0.5 MG
     Route: 048
  2. RISPERIDONE [Suspect]
     Indication: AUTISM
     Dosage: 0.25 MG
     Route: 048

REACTIONS (1)
  - HEPATIC ENZYME INCREASED [None]
